FAERS Safety Report 12126778 (Version 1)
Quarter: 2016Q1

REPORT INFORMATION
  Report Type: Report from Study
  Country: RU (occurrence: RU)
  Receive Date: 20160229
  Receipt Date: 20160229
  Transmission Date: 20160526
  Serious: Yes (Disabling)
  Sender: FDA-Public Use
  Company Number: RU-ACTELION-A-CH2016-131715

PATIENT
  Age: 16 Year
  Sex: Male
  Weight: 60 kg

DRUGS (4)
  1. ZAVESCA [Suspect]
     Active Substance: MIGLUSTAT
     Indication: NIEMANN-PICK DISEASE
     Dosage: 200 MG, TID
     Route: 048
     Dates: start: 20151228
  2. MEMANTINE. [Concomitant]
     Active Substance: MEMANTINE
     Indication: DEMENTIA
     Dosage: UNK
     Dates: start: 20151102
  3. GLYCINE. [Concomitant]
     Active Substance: GLYCINE
     Indication: SLEEP DISORDER
     Dosage: UNK
     Dates: start: 20160115, end: 20160122
  4. VALERIAN EXTRACT [Concomitant]
     Active Substance: VALERIAN EXTRACT
     Indication: SLEEP DISORDER
     Dosage: UNK
     Dates: start: 20160117, end: 20160122

REACTIONS (4)
  - Sleep disorder [Recovered/Resolved]
  - Abnormal dreams [Recovered/Resolved]
  - Pruritus [Unknown]
  - Concomitant disease aggravated [Recovered/Resolved]

NARRATIVE: CASE EVENT DATE: 20160105
